FAERS Safety Report 8928325 (Version 3)
Quarter: 2013Q2

REPORT INFORMATION
  Report Type: Spontaneous
  Country: US (occurrence: US)
  Receive Date: 20121127
  Receipt Date: 20130516
  Transmission Date: 20140414
  Serious: Yes (Hospitalization, Other)
  Sender: FDA-Public Use
  Company Number: US-B.I. PHARMACEUTICALS,INC./RIDGEFIELD-2012-BI-01119BP

PATIENT
  Age: 69 Year
  Sex: Male
  Weight: 90.72 kg

DRUGS (7)
  1. PRADAXA [Suspect]
     Indication: ARRHYTHMIA
     Dosage: 300 MG
     Route: 048
     Dates: start: 20120504, end: 201211
  2. PRADAXA [Suspect]
     Indication: ATRIAL FIBRILLATION
     Dosage: 150 MG
     Route: 048
     Dates: start: 201211, end: 20121218
  3. LASIX [Concomitant]
     Indication: FLUID RETENTION
     Dosage: 160 MG
     Route: 048
  4. LISINOPRIL [Concomitant]
     Dosage: 20 MG
     Route: 048
  5. DIGOXIN [Concomitant]
     Indication: ARRHYTHMIA
     Dosage: 125 MCG
     Route: 048
  6. POTASSIUM [Concomitant]
     Dosage: 10 MEQ
     Route: 048
  7. COREG [Concomitant]
     Dosage: 12.5 MG

REACTIONS (8)
  - Gastrointestinal haemorrhage [Recovered/Resolved]
  - Haemorrhoidal haemorrhage [Recovered/Resolved]
  - Epistaxis [Recovered/Resolved]
  - Asthenia [Recovered/Resolved]
  - Renal failure acute [Unknown]
  - Fluid retention [Not Recovered/Not Resolved]
  - Arrhythmia [Recovered/Resolved]
  - Balance disorder [Not Recovered/Not Resolved]
